FAERS Safety Report 15694674 (Version 9)
Quarter: 2022Q1

REPORT INFORMATION
  Report Type: Spontaneous
  Country: PT (occurrence: PT)
  Receive Date: 20181206
  Receipt Date: 20220329
  Transmission Date: 20220423
  Serious: Yes (Hospitalization, Other)
  Sender: FDA-Public Use
  Company Number: PT-002147023-PHHY2018PT165011

PATIENT
  Age: 66 Year
  Sex: Male

DRUGS (10)
  1. PANTOPRAZOLE [Suspect]
     Active Substance: PANTOPRAZOLE
     Dosage: 20 MG, QD
     Route: 065
  2. AMLODIPINE BESYLATE [Suspect]
     Active Substance: AMLODIPINE BESYLATE
     Indication: Hypertension
     Dosage: 10 MG, QD
  3. ATORVASTATIN CALCIUM [Suspect]
     Active Substance: ATORVASTATIN CALCIUM
     Dosage: 20 MG, QD
  4. METFORMIN HYDROCHLORIDE [Suspect]
     Active Substance: METFORMIN HYDROCHLORIDE
     Dosage: 1000 MG, BID
  5. FUROSEMIDE [Suspect]
     Active Substance: FUROSEMIDE
     Indication: Hypertension
     Dosage: 40 MG, QD
  6. CLOPIDOGREL [Suspect]
     Active Substance: CLOPIDOGREL BISULFATE
     Dosage: 75 MG, QD
  7. NEBIVOLOL [Concomitant]
     Active Substance: NEBIVOLOL
     Indication: Hypertension
     Dosage: 5 MG, QD
  8. HYDROCHLOROTHIAZIDE\TELMISARTAN [Concomitant]
     Active Substance: HYDROCHLOROTHIAZIDE\TELMISARTAN
     Dosage: TELMISARTAN 80MG + HYDROCHLOROTHIAZIDE 12.5 MG, QD
  9. CANDESARTAN [Concomitant]
     Active Substance: CANDESARTAN
     Dosage: 16 MG, QD
  10. FLUOXETINE [Concomitant]
     Active Substance: FLUOXETINE HYDROCHLORIDE
     Indication: Adjustment disorder
     Dosage: 20 MG, QD
     Dates: start: 201609

REACTIONS (9)
  - Duodenal ulcer [Recovering/Resolving]
  - Melaena [Recovering/Resolving]
  - Renal artery thrombosis [Unknown]
  - Renal ischaemia [Unknown]
  - Aortic aneurysm [Recovered/Resolved with Sequelae]
  - Palpitations [Unknown]
  - Haemoglobin decreased [Recovering/Resolving]
  - Nausea [Unknown]
  - Hypotension [Unknown]

NARRATIVE: CASE EVENT DATE: 20150101
